FAERS Safety Report 18745949 (Version 1)
Quarter: 2021Q1

REPORT INFORMATION
  Report Type: Spontaneous
  Country: US (occurrence: US)
  Receive Date: 20210114
  Receipt Date: 20210114
  Transmission Date: 20210419
  Serious: Yes (Death)
  Sender: FDA-Public Use
  Company Number: None

PATIENT
  Age: 52 Year
  Sex: Female

DRUGS (1)
  1. CAPECITABINE 500MG TAB [Suspect]
     Active Substance: CAPECITABINE
     Indication: BREAST CANCER FEMALE
     Dosage: 4  TABS BID  QAM ? QPM  PO 14 D ON ? 7 D OFF
     Route: 048
     Dates: start: 20201202, end: 20210111

REACTIONS (1)
  - Death [None]

NARRATIVE: CASE EVENT DATE: 20210111
